FAERS Safety Report 9743814 (Version 1)
Quarter: 2013Q4

REPORT INFORMATION
  Report Type: Report from Study
  Country: AU (occurrence: AU)
  Receive Date: 20131210
  Receipt Date: 20131210
  Transmission Date: 20140711
  Serious: Yes (Hospitalization)
  Sender: FDA-Public Use
  Company Number: AU-ABBVIE-13P-008-1177865-00

PATIENT
  Age: 52 Year
  Sex: Male

DRUGS (6)
  1. VALPROATE SODIUM [Suspect]
     Indication: AFFECTIVE DISORDER
     Route: 048
  2. CLOZAPRIL [Suspect]
     Indication: SCHIZOPHRENIA
     Route: 065
     Dates: start: 20060412
  3. SIMVASTATIN [Suspect]
     Indication: BLOOD CHOLESTEROL INCREASED
     Route: 048
  4. ASPIRIN [Concomitant]
     Indication: BLOOD DISORDER
     Route: 048
  5. DRAMAMINE [Concomitant]
     Indication: PRODUCT USED FOR UNKNOWN INDICATION
  6. AMLODIPINE [Concomitant]
     Indication: PRODUCT USED FOR UNKNOWN INDICATION
     Dates: start: 201306

REACTIONS (6)
  - Musculoskeletal chest pain [Unknown]
  - C-reactive protein increased [Unknown]
  - Chronic obstructive pulmonary disease [Unknown]
  - Antipsychotic drug level increased [Unknown]
  - Antipsychotic drug level increased [Unknown]
  - Dyspnoea [Unknown]
